FAERS Safety Report 25868229 (Version 2)
Quarter: 2025Q4

REPORT INFORMATION
  Report Type: Report from Study
  Country: EU (occurrence: EU)
  Receive Date: 20251001
  Receipt Date: 20251009
  Transmission Date: 20260118
  Serious: Yes (Hospitalization)
  Sender: ROCHE
  Company Number: EU-ROCHE-10000397336

PATIENT
  Age: 46 Year
  Sex: Female

DRUGS (3)
  1. ALECTINIB [Suspect]
     Active Substance: ALECTINIB
     Indication: Lung cancer metastatic
     Route: 048
     Dates: start: 20190314
  2. PROBIOTICS NOS [Concomitant]
     Active Substance: PROBIOTICS NOS
     Indication: Chronic gastritis
  3. LOPERAMIDE [Concomitant]
     Active Substance: LOPERAMIDE
     Indication: Chronic gastritis

REACTIONS (2)
  - Gastroenteritis [Not Recovered/Not Resolved]
  - Gastric polyps [Unknown]

NARRATIVE: CASE EVENT DATE: 20250630
